FAERS Safety Report 5892581-6 (Version None)
Quarter: 2008Q3

REPORT INFORMATION
  Report Type: 
  Country: None (occurrence: None)
  Receive Date: 20080919
  Receipt Date: 20080919
  Transmission Date: 20090109
  Serious: No
  Sender: FDA-Public Use
  Company Number: None

PATIENT
  Age: 69 Year
  Sex: Male

DRUGS (1)
  1. TOBRAMYCIN [Suspect]
     Indication: MULTIPLE-DRUG RESISTANCE
     Dosage: IV
     Route: 042
     Dates: start: 20080902, end: 20080906

REACTIONS (1)
  - BLOOD CREATININE INCREASED [None]
